FAERS Safety Report 19656742 (Version 3)
Quarter: 2021Q3

REPORT INFORMATION
  Report Type: Spontaneous
  Country: US (occurrence: US)
  Receive Date: 20210804
  Receipt Date: 20210917
  Transmission Date: 20211014
  Serious: Yes (Other)
  Sender: FDA-Public Use
  Company Number: US-ASTELLAS-2021US028753

PATIENT
  Age: 54 Year
  Sex: Female

DRUGS (3)
  1. MYRBETRIQ [Suspect]
     Active Substance: MIRABEGRON
     Indication: HYPERTONIC BLADDER
     Dosage: 25 MG, ONCE DAILY (TOOK FOR ABOUT 6 MONTHS TOTAL ON AND OFF)
     Route: 048
  2. MYRBETRIQ [Suspect]
     Active Substance: MIRABEGRON
     Route: 048
     Dates: start: 202105, end: 20210719
  3. MYRBETRIQ [Suspect]
     Active Substance: MIRABEGRON
     Route: 048
     Dates: start: 20210721

REACTIONS (4)
  - Disaccharide metabolism disorder [Unknown]
  - Benign renal neoplasm [Unknown]
  - Nephrolithiasis [Unknown]
  - Blood pressure increased [Unknown]
